FAERS Safety Report 13975358 (Version 1)
Quarter: 2017Q3

REPORT INFORMATION
  Report Type: Spontaneous
  Country: US (occurrence: US)
  Receive Date: 20170915
  Receipt Date: 20170915
  Transmission Date: 20171128
  Serious: No
  Sender: FDA-Public Use
  Company Number: US-PFIZER INC-2017399510

PATIENT
  Age: 68 Year
  Sex: Male

DRUGS (1)
  1. XELJANZ XR [Suspect]
     Active Substance: TOFACITINIB CITRATE
     Dosage: 11 MG, UNK
     Dates: start: 201702, end: 201705

REACTIONS (17)
  - Musculoskeletal pain [Unknown]
  - Joint range of motion decreased [Unknown]
  - Rheumatoid nodule [Unknown]
  - Musculoskeletal stiffness [Unknown]
  - Peripheral swelling [Unknown]
  - Synovitis [Unknown]
  - Blood pressure abnormal [Unknown]
  - Tenderness [Unknown]
  - Weight decreased [Unknown]
  - Pain in extremity [Unknown]
  - Back pain [Unknown]
  - Arthralgia [Unknown]
  - Red blood cell sedimentation rate increased [Unknown]
  - C-reactive protein increased [Unknown]
  - Joint swelling [Unknown]
  - Arthropathy [Unknown]
  - Lasegue^s test positive [Unknown]

NARRATIVE: CASE EVENT DATE: 2017
